FAERS Safety Report 5180001-9 (Version None)
Quarter: 2006Q4

REPORT INFORMATION
  Report Type: 
  Country: None (occurrence: None)
  Receive Date: 20061211
  Receipt Date: 20061201
  Transmission Date: 20070319
  Serious: No
  Sender: FDA-Public Use
  Company Number: E2090-00146-SPO-GB

PATIENT
  Age: 21 Year
  Sex: Male

DRUGS (2)
  1. ZONEGRAN [Suspect]
     Dosage: 50 MG, 2 IN 1 D, ORAL; UP TITRATION TO 125 MG BID; ORAL
     Route: 048
     Dates: start: 20060801, end: 20060801
  2. ZONEGRAN [Suspect]
     Dosage: 50 MG, 2 IN 1 D, ORAL; UP TITRATION TO 125 MG BID; ORAL
     Route: 048
     Dates: start: 20060801

REACTIONS (2)
  - ALOPECIA [None]
  - FURUNCLE [None]
